FAERS Safety Report 8085122-9 (Version None)
Quarter: 2012Q1

REPORT INFORMATION
  Report Type: 
  Country: None (occurrence: None)
  Receive Date: 20120128
  Receipt Date: 20110311
  Transmission Date: 20120608
  Serious: No
  Sender: FDA-Public Use
  Company Number: US-ABBOTT-11P-163-0711542-00

PATIENT
  Sex: Female
  Weight: 81.72 kg

DRUGS (13)
  1. HUMIRA [Suspect]
     Indication: RHEUMATOID ARTHRITIS
     Dates: start: 20110307
  2. PLAQUENIL [Concomitant]
     Indication: RHEUMATOID ARTHRITIS
  3. PAXIL [Concomitant]
     Indication: ANXIETY
  4. WELLBUTRIN [Concomitant]
     Indication: ANXIETY
  5. GLIPIZIDE [Concomitant]
     Indication: BLOOD GLUCOSE INCREASED
     Dates: start: 20110309
  6. CARVEDILOL [Concomitant]
     Indication: HYPERTENSION
  7. WELLBUTRIN [Concomitant]
     Indication: DEPRESSION
  8. PREDNISONE TAB [Concomitant]
     Indication: RHEUMATOID ARTHRITIS
  9. AMLODIPINE BESYLATE AND BENAZEPRIL HCL [Concomitant]
     Indication: HYPERTENSION
     Dosage: 10-40 MILLIGRAMS
  10. PRED FORTE [Concomitant]
     Indication: UVEITIS
     Dosage: 1 DROP EACH EYE DAILY
  11. ASPIRIN [Concomitant]
     Indication: HYPERTENSION
  12. TRIAMP-HCTZ [Concomitant]
     Indication: FLUID RETENTION
     Dosage: 37.5/5 MILLIGRAMS
  13. LIPITOR [Concomitant]
     Indication: BLOOD CHOLESTEROL INCREASED

REACTIONS (2)
  - BLOOD GLUCOSE INCREASED [None]
  - INJECTION SITE PAIN [None]
